FAERS Safety Report 10003706 (Version 1)
Quarter: 2014Q1

REPORT INFORMATION
  Report Type: Report from Study
  Country: US (occurrence: US)
  Receive Date: 20140312
  Receipt Date: 20140312
  Transmission Date: 20141002
  Serious: Yes (Hospitalization)
  Sender: FDA-Public Use
  Company Number: PHEH2014US004981

PATIENT
  Age: 17 Year
  Sex: Female
  Weight: 115 kg

DRUGS (6)
  1. TOBI [Suspect]
     Indication: CYSTIC FIBROSIS
     Dosage: 300 MG/5ML
     Route: 055
     Dates: start: 2009, end: 2013
  2. TOBI PODHALER [Suspect]
     Indication: CYSTIC FIBROSIS
     Dosage: 112 MG, BID
     Route: 055
     Dates: start: 2013
  3. ADVAIR [Concomitant]
     Dosage: UNK
  4. VENTOLINE [Concomitant]
     Dosage: UNK
  5. CREON [Concomitant]
     Dosage: UNK
  6. NASONEX [Concomitant]
     Dosage: UNK

REACTIONS (1)
  - Lung infection [Recovering/Resolving]
